FAERS Safety Report 6575713-6 (Version None)
Quarter: 2010Q1

REPORT INFORMATION
  Report Type: 
  Country: None (occurrence: None)
  Receive Date: 20100208
  Receipt Date: 20100208
  Transmission Date: 20100710
  Serious: Yes (Life-Threatening, Hospitalization, Other)
  Sender: FDA-Public Use
  Company Number: None

PATIENT
  Age: 56 Year
  Sex: Male
  Weight: 79.3795 kg

DRUGS (1)
  1. CHANTIX [Suspect]
     Indication: SMOKING CESSATION THERAPY
     Dosage: 1 MG 2 X DAILY PO APPROX: 21 DAYS
     Route: 048
     Dates: start: 20091215, end: 20100101

REACTIONS (10)
  - ABNORMAL DREAMS [None]
  - AGGRESSION [None]
  - CONFUSIONAL STATE [None]
  - CONSTIPATION [None]
  - DEPRESSION [None]
  - FLATULENCE [None]
  - MEMORY IMPAIRMENT [None]
  - MOOD ALTERED [None]
  - SUICIDAL IDEATION [None]
  - VERBAL ABUSE [None]
